FAERS Safety Report 4906641-7 (Version None)
Quarter: 2006Q1

REPORT INFORMATION
  Report Type: 
  Country: None (occurrence: None)
  Receive Date: 20060209
  Receipt Date: 20060129
  Transmission Date: 20060701
  Serious: Yes (Other)
  Sender: FDA-Public Use
  Company Number: FR-GLAXOSMITHKLINE-B0409613A

PATIENT
  Sex: Male

DRUGS (3)
  1. SERETIDE DISKUS [Suspect]
     Indication: BRONCHIAL HYPERACTIVITY
     Dosage: 1PUFF TWICE PER DAY
     Route: 055
     Dates: start: 20050101
  2. NORVIR [Suspect]
     Indication: HIV INFECTION
     Dates: start: 20050101
  3. HIV TRIPLE THERAPY [Concomitant]
     Indication: HIV INFECTION
     Dates: start: 20050101

REACTIONS (3)
  - AMYOTROPHY [None]
  - CUSHING'S SYNDROME [None]
  - DRUG INTERACTION [None]
